FAERS Safety Report 25816783 (Version 1)
Quarter: 2025Q3

REPORT INFORMATION
  Report Type: Spontaneous
  Country: GB (occurrence: GB)
  Receive Date: 20250918
  Receipt Date: 20250918
  Transmission Date: 20251020
  Serious: Yes (Disabling)
  Sender: TEVA
  Company Number: GB-MHRA-TPP15263473C11677034YC1757608006122

PATIENT
  Age: 21 Year
  Sex: Female
  Weight: 30 kg

DRUGS (6)
  1. DOXYCYCLINE [Suspect]
     Active Substance: DOXYCYCLINE
     Indication: Ill-defined disorder
     Route: 065
  2. MOMETASONE [Concomitant]
     Active Substance: MOMETASONE
     Indication: Ill-defined disorder
     Dates: start: 20250612, end: 20250626
  3. NYSTATIN [Concomitant]
     Active Substance: NYSTATIN
     Indication: Ill-defined disorder
     Dates: start: 20250613, end: 20250627
  4. MINERAL OIL [Concomitant]
     Active Substance: MINERAL OIL
     Indication: Ill-defined disorder
     Dates: start: 20241028
  5. HYDREX [Concomitant]
     Indication: Ill-defined disorder
     Dates: start: 20230130
  6. DERMOL [Concomitant]
     Active Substance: BENZALKONIUM CHLORIDE\CHLORHEXIDINE HYDROCHLORIDE\ISOPROPYL MYRISTATE\PARAFFIN
     Indication: Ill-defined disorder
     Dates: start: 20250203

REACTIONS (1)
  - Abdominal discomfort [Recovered/Resolved]
